FAERS Safety Report 11290707 (Version 1)
Quarter: 2015Q3

REPORT INFORMATION
  Report Type: Spontaneous
  Country: US (occurrence: US)
  Receive Date: 20150722
  Receipt Date: 20150722
  Transmission Date: 20151125
  Serious: Yes (Other)
  Sender: FDA-Public Use
  Company Number: US-UNITED THERAPEUTICS-UNT-2015-000344

PATIENT
  Age: 57 Year
  Sex: Female
  Weight: 64.4 kg

DRUGS (3)
  1. REMODULIN [Suspect]
     Active Substance: TREPROSTINIL
     Indication: PULMONARY HYPERTENSION
     Dosage: 0.032 ?G/KG, CONTINUING
     Route: 058
     Dates: start: 20141024
  2. OPSUMIT [Concomitant]
     Active Substance: MACITENTAN
     Indication: PRODUCT USED FOR UNKNOWN INDICATION
  3. REMODULIN [Suspect]
     Active Substance: TREPROSTINIL
     Dosage: 0.05 ?G/KG, CONTINUING
     Route: 058

REACTIONS (8)
  - Palpitations [Unknown]
  - Oedema peripheral [Unknown]
  - Infusion site induration [Unknown]
  - Infusion site pain [Unknown]
  - Cellulitis [Unknown]
  - Pain in extremity [Unknown]
  - Infusion site erythema [Unknown]
  - Infection [Unknown]

NARRATIVE: CASE EVENT DATE: 20150106
